FAERS Safety Report 8127973-8 (Version None)
Quarter: 2012Q1

REPORT INFORMATION
  Report Type: 
  Country: None (occurrence: None)
  Receive Date: 20120210
  Receipt Date: 20110714
  Transmission Date: 20120608
  Serious: No
  Sender: FDA-Public Use
  Company Number: US-GLAXOSMITHKLINE-A0938031A

PATIENT
  Age: 47 Year
  Sex: Male

DRUGS (1)
  1. PAXIL CR [Suspect]
     Indication: ANXIETY
     Dosage: 25MGD PER DAY
     Route: 048
     Dates: start: 20110705, end: 20110718

REACTIONS (6)
  - DIZZINESS [None]
  - DRY MOUTH [None]
  - HYPERHIDROSIS [None]
  - RESTLESSNESS [None]
  - NAUSEA [None]
  - CONFUSIONAL STATE [None]
